FAERS Safety Report 10361241 (Version 3)
Quarter: 2014Q3

REPORT INFORMATION
  Report Type: Spontaneous
  Country: GB (occurrence: GB)
  Receive Date: 20140804
  Receipt Date: 20140809
  Transmission Date: 20150326
  Serious: Yes (Death, Hospitalization)
  Sender: FDA-Public Use
  Company Number: GB-ABBVIE-13P-167-1094863-00

PATIENT
  Age: 21 Year
  Sex: Female

DRUGS (7)
  1. MICROGYNON [Suspect]
     Active Substance: ETHINYL ESTRADIOL\LEVONORGESTREL ACETATE
     Indication: PROPHYLAXIS
  2. PREDNISOLONE. [Concomitant]
     Active Substance: PREDNISOLONE
     Indication: PRODUCT USED FOR UNKNOWN INDICATION
     Route: 048
     Dates: end: 201211
  3. MICROGYNON [Suspect]
     Active Substance: ETHINYL ESTRADIOL\LEVONORGESTREL ACETATE
     Indication: CROHN^S DISEASE
  4. MICROGYNON [Suspect]
     Active Substance: ETHINYL ESTRADIOL\LEVONORGESTREL ACETATE
     Indication: ANAEMIA
  5. HUMIRA [Suspect]
     Active Substance: ADALIMUMAB
     Indication: CROHN^S DISEASE
     Route: 058
     Dates: start: 201210, end: 20121226
  6. MICROGYNON [Suspect]
     Active Substance: ETHINYL ESTRADIOL\LEVONORGESTREL ACETATE
     Indication: MENSTRUAL CYCLE MANAGEMENT
     Dosage: NO BREAK
     Route: 048
     Dates: start: 2012, end: 201212
  7. MICROGYNON [Suspect]
     Active Substance: ETHINYL ESTRADIOL\LEVONORGESTREL ACETATE
     Indication: GASTROINTESTINAL SURGERY

REACTIONS (5)
  - Intracranial venous sinus thrombosis [Fatal]
  - Cerebral thrombosis [Fatal]
  - Headache [Fatal]
  - Pain [Fatal]
  - Vomiting [Fatal]

NARRATIVE: CASE EVENT DATE: 20121222
